FAERS Safety Report 17873068 (Version 1)
Quarter: 2020Q2

REPORT INFORMATION
  Report Type: Spontaneous
  Country: AU (occurrence: AU)
  Receive Date: 20200608
  Receipt Date: 20200608
  Transmission Date: 20200714
  Serious: Yes (Other)
  Sender: FDA-Public Use
  Company Number: NVSC2020AU158957

PATIENT
  Sex: Male

DRUGS (1)
  1. TERBINAFINE SANDOZ [Suspect]
     Active Substance: TERBINAFINE
     Indication: PRODUCT USED FOR UNKNOWN INDICATION
     Dosage: 250 MG
     Route: 065

REACTIONS (2)
  - Nail pitting [Unknown]
  - Chronic kidney disease [Unknown]
